FAERS Safety Report 14918275 (Version 4)
Quarter: 2020Q1

REPORT INFORMATION
  Report Type: Spontaneous
  Country: DE (occurrence: DE)
  Receive Date: 20180521
  Receipt Date: 20200204
  Transmission Date: 20200409
  Serious: Yes (Death, Hospitalization, Other)
  Sender: FDA-Public Use
  Company Number: DE-AUROBINDO-AUR-APL-2018-026420

PATIENT
  Age: 63 Year
  Sex: Female
  Weight: 66 kg

DRUGS (32)
  1. FLUVASTATIN [Concomitant]
     Active Substance: FLUVASTATIN SODIUM
     Indication: PRODUCT USED FOR UNKNOWN INDICATION
     Dosage: 80 MILLIGRAM, ONCE A DAY,EXTENDED RELEASE
     Route: 048
  2. IMIPENEM / CILASTATINA [Concomitant]
     Active Substance: CILASTATIN SODIUM\IMIPENEM
     Indication: EVIDENCE BASED TREATMENT
     Dosage: UNK
     Route: 065
  3. PREDNISOLONE. [Concomitant]
     Active Substance: PREDNISOLONE
     Indication: KIDNEY TRANSPLANT REJECTION
     Dosage: HIGH-DOSE
     Route: 065
  4. VANCOMYCIN [Suspect]
     Active Substance: VANCOMYCIN
     Dosage: 250 MILLIGRAM
     Route: 050
  5. SULFAMETHOXAZOL;TRIMETOPRIM [Concomitant]
     Active Substance: SULFAMETHOXAZOLE\TRIMETHOPRIM
     Indication: ANTIBIOTIC PROPHYLAXIS
     Dosage: 400 MILLIGRAM
     Route: 065
  6. TRIMETHOPRIM. [Concomitant]
     Active Substance: TRIMETHOPRIM
     Indication: ANTIBIOTIC PROPHYLAXIS
     Dosage: 80 MILLIGRAM
     Route: 065
  7. LEVOFLOXACIN. [Concomitant]
     Active Substance: LEVOFLOXACIN
     Indication: EVIDENCE BASED TREATMENT
     Dosage: UNK
     Route: 065
  8. VANCOMYCIN [Suspect]
     Active Substance: VANCOMYCIN
     Dosage: 126 MILLIGRAM, FOUR TIMES/DAY
     Route: 048
  9. VANCOMYCIN [Suspect]
     Active Substance: VANCOMYCIN
     Dosage: 500 MILLIGRAM, TWO TIMES A DAY (IN 100?250 ML OF 0.9% SODIUM CHLORIDE SOLUTION)
     Route: 050
  10. METHYLPREDNISOLONE. [Concomitant]
     Active Substance: METHYLPREDNISOLONE
     Indication: IMMUNOSUPPRESSANT DRUG THERAPY
     Dosage: 16 MILLIGRAM, ONCE A DAY
     Route: 048
  11. VALGANCICLOVIR. [Concomitant]
     Active Substance: VALGANCICLOVIR
     Indication: ANTIBIOTIC PROPHYLAXIS
     Dosage: 900 MILLIGRAM, DAILY
     Route: 048
  12. PANTOPRAZOLE [Concomitant]
     Active Substance: PANTOPRAZOLE
     Indication: PRODUCT USED FOR UNKNOWN INDICATION
     Dosage: 40 MILLIGRAM, ONCE A DAY
     Route: 048
  13. VANCOMYCIN [Suspect]
     Active Substance: VANCOMYCIN
     Dosage: 250 MILLIGRAM, TWO TIMES A DAY
     Route: 048
  14. VANCOMYCIN [Suspect]
     Active Substance: VANCOMYCIN
     Dosage: 250 MILLIGRAM, FOUR TIMES/DAY (AT 2AM, 8AM, 2PM AND 8PM)
     Route: 048
  15. VANCOMYCIN [Suspect]
     Active Substance: VANCOMYCIN
     Dosage: 375 MILLIGRAM
     Route: 048
  16. MYCOPHENOLATE MOFETIL. [Concomitant]
     Active Substance: MYCOPHENOLATE MOFETIL
     Indication: IMMUNOSUPPRESSANT DRUG THERAPY
     Dosage: 1000 MILLIGRAM, TWO TIMES A DAY
     Route: 048
  17. FOSCARNET [Concomitant]
     Active Substance: FOSCARNET
     Indication: CYTOMEGALOVIRUS INFECTION
     Dosage: 3500 MILLIGRAM, TWO TIMES A DAY
     Route: 042
  18. RAMIPRIL. [Concomitant]
     Active Substance: RAMIPRIL
     Indication: PRODUCT USED FOR UNKNOWN INDICATION
     Dosage: 5 MILLIGRAM, ONCE A DAY
     Route: 048
  19. MEROPENEM. [Suspect]
     Active Substance: MEROPENEM
     Indication: UROSEPSIS
     Dosage: UNK
     Route: 042
  20. GANCICLOVIR. [Suspect]
     Active Substance: GANCICLOVIR
     Indication: CYTOMEGALOVIRUS INFECTION
     Dosage: 3.8 MILLIGRAM/KILOGRAM, TWO TIMES A DAY (DOSE ADJUSTED FOR RENAL FUNCTION)
     Route: 042
  21. METRONIDAZOL [Suspect]
     Active Substance: METRONIDAZOLE
     Indication: PRODUCT USED FOR UNKNOWN INDICATION
     Dosage: 500 MILLIGRAM, 3 TIMES A DAY
     Route: 042
  22. VANCOMYCIN [Suspect]
     Active Substance: VANCOMYCIN
     Dosage: 500 MILLIGRAM, ONCE A DAY
     Route: 050
  23. ASPIRIN. [Concomitant]
     Active Substance: ASPIRIN
     Indication: PRODUCT USED FOR UNKNOWN INDICATION
     Dosage: 100 MILLIGRAM, ONCE A DAY
     Route: 048
  24. CALCITRIOL. [Concomitant]
     Active Substance: CALCITRIOL
     Indication: PRODUCT USED FOR UNKNOWN INDICATION
     Dosage: 0.25 MICROGRAM, ONCE A DAY
     Route: 048
  25. VANCOMYCIN [Suspect]
     Active Substance: VANCOMYCIN
     Dosage: 250 MILLIGRAM
     Route: 048
  26. VANCOMYCIN [Suspect]
     Active Substance: VANCOMYCIN
     Dosage: 875 INTERNATIONAL UNIT
     Route: 048
  27. RAMIPRIL. [Concomitant]
     Active Substance: RAMIPRIL
     Indication: PRODUCT USED FOR UNKNOWN INDICATION
     Dosage: 5 MILLIGRAM, TWO TIMES A DAY
  28. SULFAMETHOXAZOL;TRIMETOPRIM [Concomitant]
     Active Substance: SULFAMETHOXAZOLE\TRIMETHOPRIM
     Dosage: 80 MILLIGRAM, ONCE A DAY
     Route: 048
  29. AMPHOTERICIN B. [Suspect]
     Active Substance: AMPHOTERICIN B
     Indication: ANTIBIOTIC THERAPY
     Dosage: UNK
     Route: 065
  30. VANCOMYCIN [Suspect]
     Active Substance: VANCOMYCIN
     Indication: CLOSTRIDIUM DIFFICILE INFECTION
     Dosage: UNK, ONCE A DAY
     Route: 050
  31. TACROLIMUS. [Concomitant]
     Active Substance: TACROLIMUS
     Indication: IMMUNOSUPPRESSANT DRUG THERAPY
     Dosage: 3 MILLIGRAM, TWO TIMES A DAY (INITIAL TARGET TROUGH CONCENTRATION 8-12 NG/ML)
     Route: 048
  32. SULFAMETHOXAZOLE [Concomitant]
     Active Substance: SULFAMETHOXAZOLE
     Indication: ANTIBIOTIC PROPHYLAXIS
     Dosage: 400 MILLIGRAM, ONCE A DAY
     Route: 048

REACTIONS (6)
  - Systemic candida [Fatal]
  - Clostridium difficile infection [Unknown]
  - Drug ineffective [Unknown]
  - Megacolon [Unknown]
  - Septic shock [Unknown]
  - Abdominal compartment syndrome [Unknown]
